FAERS Safety Report 4724049-4 (Version None)
Quarter: 2005Q3

REPORT INFORMATION
  Report Type: 
  Country: None (occurrence: None)
  Receive Date: 20050725
  Receipt Date: 20050719
  Transmission Date: 20060218
  Serious: Yes (Disabling)
  Sender: FDA-Public Use
  Company Number: GB-MERCK-0507GBR00156

PATIENT
  Age: 79 Year
  Sex: Female
  Weight: 66 kg

DRUGS (5)
  1. ZETIA [Suspect]
     Indication: BLOOD CHOLESTEROL INCREASED
     Route: 048
     Dates: start: 20050411, end: 20050527
  2. ATORVASTATIN CALCIUM [Concomitant]
     Indication: BLOOD CHOLESTEROL INCREASED
     Route: 048
     Dates: start: 20040501
  3. LEVOTHYROXINE SODIUM [Concomitant]
     Route: 065
     Dates: start: 20040501
  4. CIMETIDINE [Concomitant]
     Route: 065
     Dates: start: 19920101
  5. TAMOXIFEN CITRATE [Concomitant]
     Indication: BREAST CANCER
     Route: 048
     Dates: start: 20040501

REACTIONS (3)
  - HEPATITIS [None]
  - MALAISE [None]
  - NAUSEA [None]
